FAERS Safety Report 18779132 (Version 1)
Quarter: 2021Q1

REPORT INFORMATION
  Report Type: Spontaneous
  Country: GB (occurrence: GB)
  Receive Date: 20210125
  Receipt Date: 20210125
  Transmission Date: 20210419
  Serious: Yes (Other)
  Sender: FDA-Public Use
  Company Number: GB-AUROBINDO-AUR-APL-2021-002040

PATIENT
  Age: 85 Year
  Sex: Female

DRUGS (1)
  1. CEFALEXIN TABLETS [Suspect]
     Active Substance: CEPHALEXIN
     Indication: CYSTITIS
     Dosage: 500 MILLIGRAM
     Route: 065
     Dates: start: 20201001

REACTIONS (3)
  - Somnolence [Recovered/Resolved with Sequelae]
  - Hallucination [Recovered/Resolved with Sequelae]
  - Confusional state [Recovered/Resolved with Sequelae]
